FAERS Safety Report 15261221 (Version 1)
Quarter: 2018Q3

REPORT INFORMATION
  Report Type: Spontaneous
  Country: CA (occurrence: CA)
  Receive Date: 20180809
  Receipt Date: 20180809
  Transmission Date: 20181010
  Serious: Yes (Other)
  Sender: FDA-Public Use
  Company Number: CA-SHIRE-CA201830231

PATIENT

DRUGS (2)
  1. IMMUNOGLOBULINS, NORMAL HUMAN [Concomitant]
     Active Substance: HUMAN IMMUNOGLOBULIN G
     Indication: PRODUCT USED FOR UNKNOWN INDICATION
  2. GAMMAGARD LIQUID [Suspect]
     Active Substance: HUMAN IMMUNOGLOBULIN G
     Indication: CAPILLARY LEAK SYNDROME
     Dosage: 55 G, 2 DAY TREATMENT (55 G EACH DAY)  EVERY 4 WK
     Route: 042
     Dates: start: 20180703, end: 20180704

REACTIONS (3)
  - Feeling abnormal [Recovered/Resolved]
  - Limb discomfort [Recovered/Resolved]
  - Headache [Recovered/Resolved]

NARRATIVE: CASE EVENT DATE: 20180703
